FAERS Safety Report 9748287 (Version 4)
Quarter: 2014Q4

REPORT INFORMATION
  Report Type: Spontaneous
  Country: JP (occurrence: JP)
  Receive Date: 20131212
  Receipt Date: 20141121
  Transmission Date: 20150529
  Serious: Yes (Other)
  Sender: FDA-Public Use
  Company Number: JP-UCBSA-104218

PATIENT
  Age: 29 Year
  Sex: Female

DRUGS (9)
  1. KEPPRA [Suspect]
     Active Substance: LEVETIRACETAM
     Indication: EPILEPSY
     Dosage: 500 MG, 2X/DAY (BID)
     Route: 048
     Dates: start: 20130927, end: 20131001
  2. DEPAKENE [Concomitant]
     Active Substance: VALPROIC ACID
     Dosage: UNK
     Route: 048
  3. DEPAKENE [Concomitant]
     Active Substance: VALPROIC ACID
     Dosage: UNK
     Dates: start: 20130927
  4. PHENYTOIN. [Concomitant]
     Active Substance: PHENYTOIN
     Dosage: UNK
     Dates: start: 20130926
  5. DEPAKENE [Concomitant]
     Active Substance: VALPROIC ACID
     Dosage: UNK
     Route: 048
     Dates: start: 20121225, end: 20130318
  6. DEPAKENE [Concomitant]
     Active Substance: VALPROIC ACID
     Dosage: UNK
     Route: 048
     Dates: start: 20130319, end: 20130924
  7. PHENYTOIN. [Concomitant]
     Active Substance: PHENYTOIN
     Dosage: UNK
     Dates: start: 20130925, end: 201309
  8. DEPAKENE [Concomitant]
     Active Substance: VALPROIC ACID
     Dosage: UNK
     Route: 048
     Dates: start: 20120417, end: 20121224
  9. DEPAKENE [Concomitant]
     Active Substance: VALPROIC ACID
     Dosage: UNK

REACTIONS (1)
  - Rhabdomyolysis [Recovered/Resolved]

NARRATIVE: CASE EVENT DATE: 20130928
